FAERS Safety Report 8009363-1 (Version None)
Quarter: 2011Q4

REPORT INFORMATION
  Report Type: 
  Country: None (occurrence: None)
  Receive Date: 20111227
  Receipt Date: 20111226
  Transmission Date: 20120403
  Serious: Yes (Other)
  Sender: FDA-Public Use
  Company Number: BR-B.I. PHARMACEUTICALS,INC./RIDGEFIELD-2011-BR-01431BR

PATIENT
  Age: 81 Year
  Sex: Male

DRUGS (3)
  1. DIGOXIN [Concomitant]
  2. SUSTRATE [Concomitant]
  3. PRADAXA [Suspect]
     Indication: ATRIAL FIBRILLATION
     Dates: start: 20110901

REACTIONS (2)
  - DECREASED APPETITE [None]
  - CEREBROVASCULAR ACCIDENT [None]
